FAERS Safety Report 9118922 (Version 1)
Quarter: 2013Q1

REPORT INFORMATION
  Report Type: Spontaneous
  Country: US (occurrence: None)
  Receive Date: 20130221
  Receipt Date: 20130221
  Transmission Date: 20140127
  Serious: No
  Sender: FDA-Public Use
  Company Number: None

PATIENT
  Age: 48 Year
  Sex: Female
  Weight: 94.35 kg

DRUGS (2)
  1. PAROXETINE [Suspect]
     Indication: ANXIETY
     Dates: start: 20130118
  2. PAROXETINE [Suspect]
     Indication: PANIC ATTACK
     Dates: start: 20130118

REACTIONS (5)
  - Heart rate increased [None]
  - Tremor [None]
  - Nausea [None]
  - Headache [None]
  - Muscle spasms [None]
